FAERS Safety Report 19249023 (Version 1)
Quarter: 2021Q2

REPORT INFORMATION
  Report Type: Spontaneous
  Country: SE (occurrence: SE)
  Receive Date: 20210512
  Receipt Date: 20210512
  Transmission Date: 20210717
  Serious: Yes (Other)
  Sender: FDA-Public Use
  Company Number: SE-TAKEDA-2021TUS027717

PATIENT
  Age: 94 Year
  Sex: Female

DRUGS (3)
  1. OXYCODONE [Suspect]
     Active Substance: OXYCODONE
     Indication: FRACTURE
     Dosage: UNK
     Route: 065
     Dates: start: 202103, end: 202103
  2. OXYCODONE [Suspect]
     Active Substance: OXYCODONE
     Indication: PAIN
  3. INNOHEP [Concomitant]
     Active Substance: TINZAPARIN SODIUM
     Route: 065

REACTIONS (2)
  - Hypercapnia [Recovering/Resolving]
  - Respiratory failure [Recovering/Resolving]

NARRATIVE: CASE EVENT DATE: 202103
